FAERS Safety Report 5739256-1 (Version None)
Quarter: 2008Q2

REPORT INFORMATION
  Report Type: 
  Country: None (occurrence: None)
  Receive Date: 20080515
  Receipt Date: 20080505
  Transmission Date: 20081010
  Serious: Yes (Hospitalization)
  Sender: FDA-Public Use
  Company Number: US-ABBOTT-08P-163-0450483-00

PATIENT
  Sex: Female

DRUGS (4)
  1. SYNTHROID [Suspect]
     Indication: HYPOTHYROIDISM
     Dates: start: 19780101, end: 20040101
  2. SYNTHROID [Suspect]
     Indication: PROPHYLAXIS
     Route: 048
     Dates: start: 20040101
  3. SYNTHROID [Suspect]
     Indication: THYROID CANCER
  4. JANUVIA [Concomitant]
     Indication: TYPE 2 DIABETES MELLITUS
     Route: 048
     Dates: start: 20060101

REACTIONS (11)
  - ALOPECIA [None]
  - DIZZINESS [None]
  - DYSPHAGIA [None]
  - DYSPHONIA [None]
  - FATIGUE [None]
  - GENERALISED OEDEMA [None]
  - INSOMNIA [None]
  - MALAISE [None]
  - SKIN NODULE [None]
  - THROAT CANCER [None]
  - THYROID CANCER [None]
